FAERS Safety Report 6218465-1 (Version None)
Quarter: 2009Q2

REPORT INFORMATION
  Report Type: 
  Country: None (occurrence: None)
  Receive Date: 20090608
  Receipt Date: 20090601
  Transmission Date: 20091009
  Serious: Yes (Hospitalization, Other)
  Sender: FDA-Public Use
  Company Number: B0568597A

PATIENT
  Sex: Female

DRUGS (6)
  1. VALTREX [Suspect]
     Indication: HERPES ZOSTER
     Dosage: 1000MG THREE TIMES PER DAY
     Route: 048
     Dates: start: 20090329, end: 20090329
  2. VALTREX [Suspect]
     Dosage: 2000MG PER DAY
     Route: 048
     Dates: start: 20090330, end: 20090402
  3. PREDONINE [Concomitant]
     Indication: RHEUMATOID ARTHRITIS
     Dosage: 5MG PER DAY
     Route: 048
  4. AZULFIDINE [Concomitant]
     Indication: RHEUMATOID ARTHRITIS
     Dosage: 1000MG PER DAY
     Route: 048
  5. BENZALIN [Concomitant]
     Indication: INSOMNIA
     Dosage: 10MG PER DAY
     Route: 048
  6. BROTIZOLAM [Concomitant]
     Indication: INSOMNIA
     Dosage: .25MG PER DAY
     Route: 048

REACTIONS (4)
  - ALTERED STATE OF CONSCIOUSNESS [None]
  - DIZZINESS [None]
  - HYPOGLYCAEMIA [None]
  - RENAL FAILURE [None]
